FAERS Safety Report 7631929-9 (Version None)
Quarter: 2011Q3

REPORT INFORMATION
  Report Type: 
  Country: None (occurrence: None)
  Receive Date: 20110725
  Receipt Date: 20110513
  Transmission Date: 20111222
  Serious: Yes (Other)
  Sender: FDA-Public Use
  Company Number: US-BRISTOL-MYERS SQUIBB COMPANY-15745151

PATIENT
  Age: 89 Year
  Sex: Female

DRUGS (1)
  1. COUMADIN [Suspect]
     Indication: PULMONARY EMBOLISM
     Dates: start: 19610101

REACTIONS (1)
  - HAEMATOMA [None]
